FAERS Safety Report 5776348-5 (Version None)
Quarter: 2008Q2

REPORT INFORMATION
  Report Type: 
  Country: None (occurrence: None)
  Receive Date: 20080618
  Receipt Date: 20080408
  Transmission Date: 20081010
  Serious: No
  Sender: FDA-Public Use
  Company Number: US-BAYER-200819494NA

PATIENT
  Age: 26 Year
  Sex: Female
  Weight: 93 kg

DRUGS (2)
  1. YAZ [Suspect]
     Indication: CONTRACEPTION
     Route: 048
     Dates: start: 20080201, end: 20080407
  2. WELLBUTRIN [Concomitant]
     Dates: start: 20080408

REACTIONS (3)
  - PHARYNGITIS STREPTOCOCCAL [None]
  - POLYMENORRHOEA [None]
  - WEIGHT INCREASED [None]
